FAERS Safety Report 7587697-2 (Version None)
Quarter: 2011Q3

REPORT INFORMATION
  Report Type: 
  Country: None (occurrence: None)
  Receive Date: 20110704
  Receipt Date: 20110628
  Transmission Date: 20111222
  Serious: Yes (Hospitalization)
  Sender: FDA-Public Use
  Company Number: JP-BRISTOL-MYERS SQUIBB COMPANY-15831712

PATIENT
  Age: 60 Year
  Sex: Male

DRUGS (3)
  1. PARAPLATIN [Suspect]
     Indication: LUNG NEOPLASM MALIGNANT
     Dosage: 2ND ADMINISTRATION
     Route: 041
     Dates: end: 20110610
  2. ALIMTA [Suspect]
     Route: 041
     Dates: start: 20110610, end: 20110610
  3. HALOPERIDOL [Concomitant]

REACTIONS (1)
  - DELIRIUM [None]
